FAERS Safety Report 16917948 (Version 1)
Quarter: 2019Q4

REPORT INFORMATION
  Report Type: Spontaneous
  Country: DE (occurrence: DE)
  Receive Date: 20191015
  Receipt Date: 20191015
  Transmission Date: 20200122
  Serious: Yes (Other)
  Sender: FDA-Public Use
  Company Number: DE-ACCORD-157859

PATIENT
  Age: 60 Year
  Sex: Female

DRUGS (8)
  1. CEFTRIAXONE. [Suspect]
     Active Substance: CEFTRIAXONE
     Indication: SERRATIA INFECTION
     Route: 042
  2. OFLOXACIN. [Suspect]
     Active Substance: OFLOXACIN
     Indication: PSEUDOMONAS INFECTION
     Dosage: ROUTE: LOCAL APPLICATION
     Route: 050
  3. CLINDAMYCIN. [Suspect]
     Active Substance: CLINDAMYCIN
     Indication: PSEUDOMONAS INFECTION
     Route: 042
  4. GRAMICIDIN/NEOMYCIN/POLYMYXIN B [Suspect]
     Active Substance: GRAMICIDIN\NEOMYCIN\POLYMYXIN B SULFATE
     Indication: SERRATIA INFECTION
     Dosage: ROUTE: LOCAL APPLICATION
     Route: 050
  5. ACETAZOLAMIDE. [Suspect]
     Active Substance: ACETAZOLAMIDE
     Indication: SERRATIA INFECTION
     Route: 048
  6. POLIHEXANIDE [Suspect]
     Active Substance: POLIHEXANIDE
     Indication: SERRATIA INFECTION
     Dosage: ROUTE: LOCAL APPLICATION
     Route: 050
  7. CYCLOPENTOLATE. [Suspect]
     Active Substance: CYCLOPENTOLATE
     Indication: ULCERATIVE KERATITIS
     Dosage: ROUTE: LOCAL APPLICATION
     Route: 050
  8. PROPAMIDINE [Suspect]
     Active Substance: PROPAMIDINE
     Indication: SERRATIA INFECTION
     Dosage: ROUTE: LOCAL APPLICATION
     Route: 050

REACTIONS (1)
  - Drug ineffective [Unknown]
